FAERS Safety Report 6311094-0 (Version None)
Quarter: 2009Q3

REPORT INFORMATION
  Report Type: 
  Country: None (occurrence: None)
  Receive Date: 20090817
  Receipt Date: 20090807
  Transmission Date: 20100115
  Serious: Yes (Hospitalization)
  Sender: FDA-Public Use
  Company Number: FR-B.I. PHARMACEUTICALS,INC./RIDGEFIELD-2009-FF-00549FF

PATIENT
  Sex: Male

DRUGS (8)
  1. PERSANTINE [Suspect]
     Route: 048
     Dates: end: 20090306
  2. DAONIL [Concomitant]
     Dates: start: 20090306
  3. GLUCOPHAGE [Concomitant]
     Route: 048
     Dates: start: 20090306
  4. PRETERAX [Concomitant]
     Route: 048
  5. KARDEGIC [Concomitant]
  6. ASASANTINE [Concomitant]
  7. ZYLORIC [Concomitant]
  8. ORAL ANTIDIABETICS [Concomitant]
     Indication: DIABETES MELLITUS
     Route: 048

REACTIONS (2)
  - HEPATITIS [None]
  - JAUNDICE [None]
